FAERS Safety Report 18472231 (Version 1)
Quarter: 2020Q4

REPORT INFORMATION
  Report Type: Report from Study
  Country: US (occurrence: US)
  Receive Date: 20201106
  Receipt Date: 20201106
  Transmission Date: 20210114
  Serious: No
  Sender: FDA-Public Use
  Company Number: NVSC2020US287952

PATIENT
  Sex: Male

DRUGS (1)
  1. GILENYA [Suspect]
     Active Substance: FINGOLIMOD HYDROCHLORIDE
     Indication: MULTIPLE SCLEROSIS
     Dosage: 0.5 MG, QD
     Route: 048

REACTIONS (10)
  - Abdominal discomfort [Unknown]
  - Visual impairment [Unknown]
  - Balance disorder [Unknown]
  - Flatulence [Unknown]
  - Constipation [Unknown]
  - Exaggerated startle response [Unknown]
  - Gait disturbance [Unknown]
  - Abdominal distension [Unknown]
  - Pain in extremity [Unknown]
  - Asthenia [Unknown]
